FAERS Safety Report 22892672 (Version 7)
Quarter: 2024Q3

REPORT INFORMATION
  Report Type: Spontaneous
  Country: DE (occurrence: DE)
  Receive Date: 20230901
  Receipt Date: 20240708
  Transmission Date: 20241016
  Serious: Yes (Other)
  Sender: TAKEDA
  Company Number: DE-JNJFOC-20230859947

PATIENT
  Age: 8 Decade

DRUGS (45)
  1. BORTEZOMIB [Suspect]
     Active Substance: BORTEZOMIB
     Indication: Plasma cell myeloma
     Dosage: 1.3 MILLIGRAM/SQ. METER
     Route: 065
     Dates: start: 20230516
  2. BORTEZOMIB [Suspect]
     Active Substance: BORTEZOMIB
     Dosage: 1.3 MILLIGRAM/SQ. METER
     Route: 065
     Dates: start: 20230517
  3. BORTEZOMIB [Suspect]
     Active Substance: BORTEZOMIB
     Dosage: 1.3 MILLIGRAM/SQ. METER
     Route: 065
     Dates: start: 20230520
  4. BORTEZOMIB [Suspect]
     Active Substance: BORTEZOMIB
     Dosage: 1.3 MILLIGRAM/SQ. METER
     Route: 065
     Dates: start: 20230612
  5. BORTEZOMIB [Suspect]
     Active Substance: BORTEZOMIB
     Dosage: 1.3 MILLIGRAM/SQ. METER
     Route: 065
     Dates: start: 20230613
  6. BORTEZOMIB [Suspect]
     Active Substance: BORTEZOMIB
     Dosage: 1.3 MILLIGRAM/SQ. METER
     Route: 065
     Dates: start: 20230704
  7. BORTEZOMIB [Suspect]
     Active Substance: BORTEZOMIB
     Dosage: 1.3 MILLIGRAM/SQ. METER
     Route: 065
  8. DEXAMETHASONE [Suspect]
     Active Substance: DEXAMETHASONE
     Indication: Plasma cell myeloma
     Dosage: 20 MILLIGRAM
     Route: 065
     Dates: start: 20230514
  9. DEXAMETHASONE [Suspect]
     Active Substance: DEXAMETHASONE
     Dosage: 20 MILLIGRAM
     Route: 065
     Dates: start: 20230516
  10. DEXAMETHASONE [Suspect]
     Active Substance: DEXAMETHASONE
     Dosage: 20 MILLIGRAM
     Route: 065
     Dates: start: 20230517
  11. DEXAMETHASONE [Suspect]
     Active Substance: DEXAMETHASONE
     Dosage: 20 MILLIGRAM
     Route: 065
     Dates: start: 20230518
  12. DEXAMETHASONE [Suspect]
     Active Substance: DEXAMETHASONE
     Dosage: 20 MILLIGRAM
     Route: 065
     Dates: start: 20230520
  13. DEXAMETHASONE [Suspect]
     Active Substance: DEXAMETHASONE
     Dosage: 20 MILLIGRAM
     Route: 065
     Dates: start: 20230521
  14. DEXAMETHASONE [Suspect]
     Active Substance: DEXAMETHASONE
     Dosage: 20 MILLIGRAM
     Route: 065
     Dates: start: 20230612
  15. DEXAMETHASONE [Suspect]
     Active Substance: DEXAMETHASONE
     Dosage: 20 MILLIGRAM
     Route: 065
     Dates: start: 20230613
  16. DEXAMETHASONE [Suspect]
     Active Substance: DEXAMETHASONE
     Dosage: 20 MILLIGRAM
     Route: 065
     Dates: start: 20230614
  17. DEXAMETHASONE [Suspect]
     Active Substance: DEXAMETHASONE
     Dosage: 20 MILLIGRAM
     Route: 065
     Dates: start: 20230704
  18. DEXAMETHASONE [Suspect]
     Active Substance: DEXAMETHASONE
     Dosage: 20 MILLIGRAM
     Route: 065
     Dates: start: 20230705
  19. DEXAMETHASONE [Suspect]
     Active Substance: DEXAMETHASONE
     Dosage: 20 MILLIGRAM
     Route: 065
     Dates: start: 20230705
  20. DEXAMETHASONE [Suspect]
     Active Substance: DEXAMETHASONE
     Dosage: 20 MILLIGRAM
     Route: 065
     Dates: start: 20230706
  21. DEXAMETHASONE [Suspect]
     Active Substance: DEXAMETHASONE
     Dosage: 20 MILLIGRAM
     Route: 065
  22. DARZALEX [Suspect]
     Active Substance: DARATUMUMAB
     Indication: Plasma cell myeloma
     Dosage: 16 MILLIGRAM/SQ. METER
     Route: 065
     Dates: start: 20230516
  23. DARZALEX [Suspect]
     Active Substance: DARATUMUMAB
     Dosage: 16 MILLIGRAM/SQ. METER
     Route: 065
     Dates: start: 20230521
  24. DARZALEX [Suspect]
     Active Substance: DARATUMUMAB
     Dosage: 16 MILLIGRAM/SQ. METER
     Route: 065
     Dates: start: 20230612
  25. DARZALEX [Suspect]
     Active Substance: DARATUMUMAB
     Dosage: 16 MILLIGRAM/SQ. METER
     Route: 065
     Dates: start: 20230615
  26. DARZALEX [Suspect]
     Active Substance: DARATUMUMAB
     Dosage: 16 MILLIGRAM/SQ. METER
     Route: 065
     Dates: start: 20230704
  27. DARZALEX [Suspect]
     Active Substance: DARATUMUMAB
     Dosage: 16 MILLIGRAM/SQ. METER
     Route: 065
     Dates: start: 20230707
  28. DARZALEX [Suspect]
     Active Substance: DARATUMUMAB
     Dosage: 16 MILLIGRAM/SQ. METER
     Route: 065
  29. DOXORUBICIN [Suspect]
     Active Substance: DOXORUBICIN
     Indication: Plasma cell myeloma
     Dosage: 9 MILLIGRAM/SQ. METER
     Route: 065
     Dates: start: 20230517, end: 20230520
  30. DOXORUBICIN [Suspect]
     Active Substance: DOXORUBICIN
     Dosage: 9 MILLIGRAM/SQ. METER
     Route: 065
     Dates: start: 20230613
  31. DOXORUBICIN [Suspect]
     Active Substance: DOXORUBICIN
     Dosage: 9 MILLIGRAM/SQ. METER
     Route: 065
     Dates: start: 20230614
  32. DOXORUBICIN [Suspect]
     Active Substance: DOXORUBICIN
     Dosage: 9 MILLIGRAM/SQ. METER
     Route: 065
     Dates: start: 20230614
  33. DOXORUBICIN [Suspect]
     Active Substance: DOXORUBICIN
     Dosage: 9 MILLIGRAM/SQ. METER
     Route: 065
     Dates: start: 20230615
  34. DOXORUBICIN [Suspect]
     Active Substance: DOXORUBICIN
     Dosage: 9 MILLIGRAM/SQ. METER
     Route: 065
     Dates: start: 20230704
  35. DOXORUBICIN [Suspect]
     Active Substance: DOXORUBICIN
     Dosage: 6 MILLIGRAM/SQ. METER
     Route: 065
     Dates: start: 20230704
  36. DOXORUBICIN [Suspect]
     Active Substance: DOXORUBICIN
     Dosage: 9 MILLIGRAM/SQ. METER
     Route: 065
     Dates: start: 20230705
  37. DOXORUBICIN [Suspect]
     Active Substance: DOXORUBICIN
     Dosage: 9 MILLIGRAM/SQ. METER
     Route: 065
     Dates: start: 20230706
  38. DOXORUBICIN [Suspect]
     Active Substance: DOXORUBICIN
     Dosage: 9 MILLIGRAM/SQ. METER
     Route: 065
     Dates: start: 20230707
  39. DOXORUBICIN [Suspect]
     Active Substance: DOXORUBICIN
     Dosage: 6 MILLIGRAM/SQ. METER
     Route: 065
     Dates: start: 20230804
  40. DOXORUBICIN [Suspect]
     Active Substance: DOXORUBICIN
     Dosage: 9 MILLIGRAM/SQ. METER
     Route: 065
     Dates: start: 20230804
  41. DOXORUBICIN [Suspect]
     Active Substance: DOXORUBICIN
     Dosage: 6 MILLIGRAM/SQ. METER
     Route: 065
     Dates: start: 20230805, end: 20230808
  42. DOXORUBICIN [Suspect]
     Active Substance: DOXORUBICIN
     Dosage: 9 MILLIGRAM/SQ. METER
     Route: 065
  43. POMALIDOMIDE [Suspect]
     Active Substance: POMALIDOMIDE
     Indication: Plasma cell myeloma
     Dosage: 4 MILLIGRAM
     Route: 065
     Dates: start: 20230513, end: 20230615
  44. POMALIDOMIDE [Suspect]
     Active Substance: POMALIDOMIDE
     Dosage: 4 MILLIGRAM
     Route: 065
     Dates: start: 20230517, end: 20230530
  45. POMALIDOMIDE [Suspect]
     Active Substance: POMALIDOMIDE
     Dosage: 2 MILLIGRAM
     Route: 065
     Dates: start: 20230705, end: 20230707

REACTIONS (2)
  - Plasma cell myeloma [Unknown]
  - Intentional product use issue [Unknown]

NARRATIVE: CASE EVENT DATE: 20230101
